FAERS Safety Report 7653503-0 (Version None)
Quarter: 2011Q3

REPORT INFORMATION
  Report Type: 
  Country: None (occurrence: None)
  Receive Date: 20110803
  Receipt Date: 20110725
  Transmission Date: 20111222
  Serious: Yes (Hospitalization)
  Sender: FDA-Public Use
  Company Number: LB-NOVOPROD-331717

PATIENT

DRUGS (4)
  1. CONCORD 693 [Concomitant]
     Dosage: 5 MG, QD
     Dates: start: 20100101
  2. RAMIPRIL [Concomitant]
     Indication: HYPERTENSION
     Dosage: 10 MG, QD
     Dates: start: 20080101
  3. VICTOZA [Suspect]
     Indication: TYPE 2 DIABETES MELLITUS
     Dosage: 0.6 MG, QD
     Dates: start: 20110611, end: 20110617
  4. LOPID [Concomitant]
     Dosage: 600 MG, QD
     Dates: start: 20080101

REACTIONS (1)
  - PANCREATITIS [None]
